FAERS Safety Report 8022486-6 (Version None)
Quarter: 2011Q4

REPORT INFORMATION
  Report Type: 
  Country: None (occurrence: None)
  Receive Date: 20111229
  Receipt Date: 20111213
  Transmission Date: 20120403
  Serious: Yes (Other)
  Sender: FDA-Public Use
  Company Number: 1000026453

PATIENT
  Age: 73 Year
  Sex: Male

DRUGS (6)
  1. SPIRIVA(TIOTROPIUM BROMIDE) (18 MICROGRAM) (TIOTROPIUM BROMIDE) [Concomitant]
  2. OXYGEN (OXYGEN) (OXYGEN) [Concomitant]
  3. SERETIDE (FLUTICASONE, SALMETEROL)(FLUTICASONE, SALMETEROL) [Concomitant]
  4. ROFLUMILAST (ROFLUMILAST) (500 MICROGRAM, TABLETS) [Suspect]
     Indication: CHRONIC OBSTRUCTIVE PULMONARY DISEASE
     Dosage: (500 MCG)
     Dates: start: 20110526, end: 20110101
  5. ADIRO (ACETYLSALICYLIC ACID)(100 MILLIGRAM)(ACETYLSALICYLIC ACID) [Concomitant]
  6. PANTECTA (PANTOPRAZOLE SODIUM SESQUIHYDRATE)(20 MILLIGRAM)(PANTOPRAZOL [Concomitant]

REACTIONS (3)
  - SINUS TACHYCARDIA [None]
  - WEIGHT DECREASED [None]
  - HYPOTENSION [None]
